FAERS Safety Report 23875002 (Version 2)
Quarter: 2024Q3

REPORT INFORMATION
  Report Type: Spontaneous
  Country: US (occurrence: US)
  Receive Date: 20240520
  Receipt Date: 20240709
  Transmission Date: 20241016
  Serious: Yes (Other)
  Sender: BRISTOL MYERS SQUIBB
  Company Number: US-BRISTOL-MYERS SQUIBB COMPANY-2024-077648

PATIENT
  Age: 85 Year
  Sex: Male
  Weight: 84.37 kg

DRUGS (1)
  1. POMALYST [Suspect]
     Active Substance: POMALIDOMIDE
     Indication: Plasma cell myeloma
     Dosage: FREQUENCY: 21 DAYS OF 28 DAYS
     Route: 048

REACTIONS (3)
  - Anaemia [Recovering/Resolving]
  - Pancytopenia [Not Recovered/Not Resolved]
  - Performance status decreased [Unknown]
